FAERS Safety Report 21659130 (Version 1)
Quarter: 2022Q4

REPORT INFORMATION
  Report Type: Spontaneous
  Country: IT (occurrence: IT)
  Receive Date: 20221129
  Receipt Date: 20221129
  Transmission Date: 20230112
  Serious: Yes (Other)
  Sender: FDA-Public Use
  Company Number: IT-BAUSCH-BL-2022-026291

PATIENT
  Sex: Female

DRUGS (2)
  1. ZYCLARA [Suspect]
     Active Substance: IMIQUIMOD
     Indication: Pigmentation disorder
     Route: 065
  2. ZYCLARA [Suspect]
     Active Substance: IMIQUIMOD
     Route: 065
     Dates: start: 20221120

REACTIONS (5)
  - Hypersensitivity [Recovered/Resolved]
  - Skin abrasion [Recovered/Resolved]
  - Skin haemorrhage [Recovered/Resolved]
  - Flushing [Unknown]
  - Off label use [Unknown]
